FAERS Safety Report 24387031 (Version 1)
Quarter: 2024Q4

REPORT INFORMATION
  Report Type: Spontaneous
  Country: CN (occurrence: CN)
  Receive Date: 20241002
  Receipt Date: 20241002
  Transmission Date: 20250114
  Serious: Yes (Hospitalization)
  Sender: CHEPLAPHARM
  Company Number: CN-CHEPLA-2024012389

PATIENT
  Age: 44 Year
  Sex: Male

DRUGS (3)
  1. OLANZAPINE [Suspect]
     Active Substance: OLANZAPINE
     Dosage: 20 PILLS, ONCE
     Route: 048
     Dates: start: 20230321, end: 20230321
  2. ESTAZOLAM [Suspect]
     Active Substance: ESTAZOLAM
     Dates: start: 20230321, end: 20230321
  3. TRAZODONE HYDROCHLORIDE [Suspect]
     Active Substance: TRAZODONE HYDROCHLORIDE
     Dosage: ABOUT 10 PILLS
     Dates: start: 20230321, end: 20230321

REACTIONS (6)
  - Altered state of consciousness [Recovered/Resolved]
  - Erythema [Recovered/Resolved]
  - Coma [Recovered/Resolved]
  - Pyrexia [Recovered/Resolved]
  - Arachnoid cyst [Recovered/Resolved]
  - Overdose [Unknown]
